FAERS Safety Report 12215597 (Version 3)
Quarter: 2016Q2

REPORT INFORMATION
  Report Type: Report from Study
  Country: DE (occurrence: DE)
  Receive Date: 20160328
  Receipt Date: 20160525
  Transmission Date: 20160815
  Serious: Yes (Hospitalization)
  Sender: FDA-Public Use
  Company Number: DE-PFIZER INC-2016153992

PATIENT
  Age: 64 Year
  Sex: Female
  Weight: 83 kg

DRUGS (5)
  1. RITUXIMAB [Suspect]
     Active Substance: RITUXIMAB
     Dosage: 701.25 MG, UNK
     Dates: start: 20160122
  2. CYTARABIN [Suspect]
     Active Substance: CYTARABINE
     Dosage: 3740 MG, UNK
     Dates: start: 20160124
  3. CISPLATIN. [Suspect]
     Active Substance: CISPLATIN
     Dosage: 430.45 MG, UNK
     Dates: start: 20160123
  4. TEMSIROLIMUS [Suspect]
     Active Substance: TEMSIROLIMUS
     Dosage: 25 MG, CYCLIC
     Route: 041
     Dates: start: 20160121, end: 20160303
  5. DEXAMETHASONE. [Suspect]
     Active Substance: DEXAMETHASONE
     Dosage: 40 MG, UNK
     Dates: start: 20160123

REACTIONS (1)
  - Bronchopulmonary aspergillosis [Recovered/Resolved]

NARRATIVE: CASE EVENT DATE: 20160307
